FAERS Safety Report 25650943 (Version 3)
Quarter: 2025Q4

REPORT INFORMATION
  Report Type: Spontaneous
  Country: JP (occurrence: JP)
  Receive Date: 20250806
  Receipt Date: 20251006
  Transmission Date: 20260118
  Serious: Yes (Hospitalization)
  Sender: ELI LILLY AND COMPANY
  Company Number: JP-ELI_LILLY_AND_COMPANY-JP202508003431

PATIENT
  Age: 74 Year
  Sex: Female

DRUGS (2)
  1. KISUNLA [Suspect]
     Active Substance: DONANEMAB-AZBT
     Indication: Dementia Alzheimer^s type
     Dosage: 700 MG
     Route: 041
     Dates: start: 20250729, end: 20250729
  2. CALONAL [Concomitant]
     Active Substance: ACETAMINOPHEN
     Indication: Anaphylaxis prophylaxis
     Dosage: 400 MG, SINGLE
     Route: 048
     Dates: start: 20250729

REACTIONS (1)
  - Anaphylactic shock [Recovered/Resolved]

NARRATIVE: CASE EVENT DATE: 20250801
